FAERS Safety Report 9990523 (Version 1)
Quarter: 2014Q1

REPORT INFORMATION
  Report Type: Spontaneous
  Country: US (occurrence: US)
  Receive Date: 20140310
  Receipt Date: 20140310
  Transmission Date: 20141002
  Serious: No
  Sender: FDA-Public Use
  Company Number: US-PFIZER INC-2014066333

PATIENT
  Age: 71 Year
  Sex: Male

DRUGS (2)
  1. VIAGRA [Suspect]
     Dosage: 100 MG, UNK
     Route: 048
  2. VIAGRA [Suspect]
     Dosage: HALF TABLET OF 100 MG
     Route: 048

REACTIONS (1)
  - Drug ineffective [Unknown]
